FAERS Safety Report 7385055-7 (Version None)
Quarter: 2011Q1

REPORT INFORMATION
  Report Type: 
  Country: None (occurrence: None)
  Receive Date: 20110323
  Receipt Date: 20110314
  Transmission Date: 20110831
  Serious: Yes (Hospitalization)
  Sender: FDA-Public Use
  Company Number: US-004914

PATIENT
  Sex: Female
  Weight: 81.6475 kg

DRUGS (6)
  1. TRANEXAMIC ACID [Suspect]
     Indication: MENORRHAGIA
     Dosage: TWO TABLETS THREE TIMES A DAY, ORAL
     Route: 048
     Dates: start: 20110218, end: 20110308
  2. LEVOTHROID [Concomitant]
  3. MEDROXYPROGESTERONE [Suspect]
     Dosage: 10 MG, QD
     Dates: start: 20110224, end: 20110308
  4. VITAMINS NOS [Concomitant]
  5. METOPROLOL TARTRATE [Concomitant]
  6. IRON [Concomitant]

REACTIONS (3)
  - BLOOD COUNT ABNORMAL [None]
  - DIZZINESS [None]
  - NO THERAPEUTIC RESPONSE [None]
